FAERS Safety Report 22381493 (Version 2)
Quarter: 2023Q2

REPORT INFORMATION
  Report Type: Spontaneous
  Country: GB (occurrence: GB)
  Receive Date: 20230530
  Receipt Date: 20230622
  Transmission Date: 20230721
  Serious: Yes (Hospitalization, Other)
  Sender: FDA-Public Use
  Company Number: GB-CELLTRION INC.-2023GB010385

PATIENT

DRUGS (1)
  1. INFLIXIMAB [Suspect]
     Active Substance: INFLIXIMAB
     Indication: Behcet^s syndrome
     Dosage: SECOND INFUSION
     Route: 042
     Dates: start: 20230419

REACTIONS (20)
  - Behcet^s syndrome [Recovering/Resolving]
  - Feeling abnormal [Not Recovered/Not Resolved]
  - Urinary tract infection [Recovering/Resolving]
  - Symptom recurrence [Not Recovered/Not Resolved]
  - Condition aggravated [Not Recovered/Not Resolved]
  - Musculoskeletal stiffness [Not Recovered/Not Resolved]
  - Aural polyp [Not Recovered/Not Resolved]
  - Ear discomfort [Not Recovered/Not Resolved]
  - Cold sweat [Not Recovered/Not Resolved]
  - Oral pain [Not Recovered/Not Resolved]
  - Penile ulceration [Not Recovered/Not Resolved]
  - Penile erythema [Not Recovered/Not Resolved]
  - Pain [Not Recovered/Not Resolved]
  - Dysuria [Not Recovered/Not Resolved]
  - Rash pruritic [Not Recovered/Not Resolved]
  - Mouth ulceration [Not Recovered/Not Resolved]
  - Malaise [Not Recovered/Not Resolved]
  - Lip swelling [Not Recovered/Not Resolved]
  - Night sweats [Not Recovered/Not Resolved]
  - Intentional product use issue [Unknown]

NARRATIVE: CASE EVENT DATE: 20230505
